FAERS Safety Report 5271098-6 (Version None)
Quarter: 2007Q1

REPORT INFORMATION
  Report Type: 
  Country: None (occurrence: None)
  Receive Date: 20070321
  Receipt Date: 20070313
  Transmission Date: 20070707
  Serious: Yes (Death)
  Sender: FDA-Public Use
  Company Number: GB-GLAXOSMITHKLINE-B0462796A

PATIENT
  Age: 52 Year
  Sex: Male

DRUGS (5)
  1. ABACAVIR [Suspect]
     Indication: RETROVIRAL INFECTION
     Dosage: 300MG TWICE PER DAY
     Dates: start: 20001101
  2. AMPRENAVIR [Suspect]
     Indication: RETROVIRAL INFECTION
     Dosage: 750MG TWICE PER DAY
     Dates: start: 20001101
  3. KALETRA [Suspect]
     Indication: RETROVIRAL INFECTION
     Dates: start: 20001101
  4. LAMIVUDINE [Suspect]
     Indication: RETROVIRAL INFECTION
     Dosage: 150MG TWICE PER DAY
     Dates: start: 20001101
  5. NEVIRAPINE [Suspect]
     Indication: RETROVIRAL INFECTION
     Dosage: 200MG TWICE PER DAY
     Dates: start: 20001101

REACTIONS (6)
  - AGITATION [None]
  - COGNITIVE DISORDER [None]
  - INCONTINENCE [None]
  - LEUKOENCEPHALOPATHY [None]
  - MENTAL DISORDER [None]
  - PARKINSONISM [None]
